FAERS Safety Report 5914647-4 (Version None)
Quarter: 2008Q4

REPORT INFORMATION
  Report Type: 
  Country: None (occurrence: None)
  Receive Date: 20081008
  Receipt Date: 20080925
  Transmission Date: 20090506
  Serious: Yes (Other)
  Sender: FDA-Public Use
  Company Number: 239184J08USA

PATIENT
  Age: 34 Year
  Sex: Male
  Weight: 107 kg

DRUGS (11)
  1. REBIF [Suspect]
     Indication: MULTIPLE SCLEROSIS
     Dates: start: 20080509, end: 20080912
  2. ACYCLOVIR [Concomitant]
  3. METHYLIN(METHYLPHENIDATE HYDROCHLORIDE) [Concomitant]
  4. ATENOLOL [Concomitant]
  5. SIMVASTATIN [Concomitant]
  6. FOLIC ACID [Concomitant]
  7. FLUOXETINE [Concomitant]
  8. FAMOTIDINE [Concomitant]
  9. VITAMIN B12 [Concomitant]
  10. VITAMIN D [Concomitant]
  11. ASCORBIC ACID [Concomitant]

REACTIONS (1)
  - CONVULSION [None]
